FAERS Safety Report 9412373 (Version 1)
Quarter: 2013Q3

REPORT INFORMATION
  Report Type: Spontaneous
  Country: US (occurrence: US)
  Receive Date: 20130722
  Receipt Date: 20130722
  Transmission Date: 20140515
  Serious: Yes (Hospitalization)
  Sender: FDA-Public Use
  Company Number: US-MYLANLABS-2013S1015624

PATIENT
  Age: 56 Year
  Sex: Male

DRUGS (12)
  1. CLOZAPINE [Suspect]
     Indication: SCHIZOPHRENIA, PARANOID TYPE
     Dosage: TITRATED TO 450MG DAILY; DISCONTINUED THEN TITRATED TO 300MG DAILY
     Route: 065
     Dates: start: 2005
  2. CLOZAPINE [Suspect]
     Indication: SCHIZOPHRENIA, PARANOID TYPE
     Dosage: TITRATED TO 300MG DAILY; THEN INCREASED TO 350-400MG DAILY IN 2007
     Route: 065
     Dates: start: 2005
  3. CLOZAPINE [Suspect]
     Indication: SCHIZOPHRENIA, PARANOID TYPE
     Dosage: 350-400MG DAILY
     Route: 065
     Dates: start: 2005
  4. DOXEPIN [Concomitant]
     Indication: DEPRESSION
     Route: 065
  5. NORTRIPTYLINE [Concomitant]
     Indication: DEPRESSION
     Route: 065
  6. BUPROPION [Concomitant]
     Indication: DEPRESSION
     Route: 065
  7. SERTRALINE [Concomitant]
     Indication: DEPRESSION
     Route: 065
  8. ESCITALOPRAM [Concomitant]
     Indication: DEPRESSION
     Route: 065
  9. HALOPERIDOL [Concomitant]
     Indication: SCHIZOPHRENIA, PARANOID TYPE
     Route: 065
     Dates: start: 200904
  10. OLANZAPINE [Concomitant]
     Route: 065
  11. VALPROIC ACID [Concomitant]
     Route: 065
  12. QUETIAPINE [Concomitant]
     Route: 065

REACTIONS (7)
  - Salivary hypersecretion [Recovered/Resolved]
  - Constipation [Recovered/Resolved]
  - Lethargy [Recovered/Resolved]
  - Syncope [Recovered/Resolved]
  - Drug dose omission [Recovered/Resolved]
  - Pneumonia [Recovered/Resolved]
  - Pneumonia aspiration [Recovered/Resolved]
